FAERS Safety Report 14817953 (Version 1)
Quarter: 2018Q2

REPORT INFORMATION
  Report Type: Spontaneous
  Country: US (occurrence: US)
  Receive Date: 20180427
  Receipt Date: 20180427
  Transmission Date: 20180711
  Serious: No
  Sender: FDA-Public Use
  Company Number: US-SENTYNL THERAPEUTICS, INC.  -2046678

PATIENT
  Age: 57 Year
  Sex: Female

DRUGS (1)
  1. LEVORPHANOL TARTRATE. [Suspect]
     Active Substance: LEVORPHANOL TARTRATE
     Route: 048
     Dates: start: 20170316

REACTIONS (1)
  - Withdrawal syndrome [Unknown]
